FAERS Safety Report 17831201 (Version 1)
Quarter: 2020Q2

REPORT INFORMATION
  Report Type: Spontaneous
  Country: DE (occurrence: DE)
  Receive Date: 20200527
  Receipt Date: 20200527
  Transmission Date: 20200714
  Serious: Yes (Hospitalization)
  Sender: FDA-Public Use
  Company Number: DE-009507513-2005DEU007870

PATIENT
  Age: 32 Year
  Sex: Female

DRUGS (9)
  1. MENOGON [Suspect]
     Active Substance: MENOTROPINS
     Dosage: UNK
  2. ESTRIFAM [Suspect]
     Active Substance: ESTRADIOL
     Dosage: UNK
  3. L-THYROXIN [Concomitant]
     Active Substance: LEVOTHYROXINE SODIUM
  4. GONAL-F [Suspect]
     Active Substance: FOLLITROPIN
     Dosage: UNK
  5. ORGALUTRAN [Suspect]
     Active Substance: GANIRELIX ACETATE
     Dosage: UNK
  6. FOLIC ACID. [Concomitant]
     Active Substance: FOLIC ACID
  7. CLEXANE (ENOXAPARIN SODIUM) [Concomitant]
     Active Substance: ENOXAPARIN SODIUM
  8. OVITRELLE [Suspect]
     Active Substance: CHORIOGONADOTROPIN ALFA
     Dosage: UNK
  9. PROGESTAN [Suspect]
     Active Substance: PROGESTERONE
     Dosage: UNK

REACTIONS (2)
  - Hospitalisation [Recovered/Resolved]
  - Ovarian hyperstimulation syndrome [Recovered/Resolved]

NARRATIVE: CASE EVENT DATE: 20150408
